FAERS Safety Report 19216397 (Version 1)
Quarter: 2021Q2

REPORT INFORMATION
  Report Type: Spontaneous
  Country: US (occurrence: US)
  Receive Date: 20210504
  Receipt Date: 20210504
  Transmission Date: 20210717
  Serious: Yes (Disabling)
  Sender: FDA-Public Use
  Company Number: None

PATIENT
  Age: 32 Year
  Sex: Female
  Weight: 52 kg

DRUGS (2)
  1. TOPIRAMATE 25 MG TAB CIPL, GENERIC FOR: TOPAMAX [Suspect]
     Active Substance: TOPIRAMATE
     Indication: HEADACHE
     Dosage: ?          QUANTITY:1 TABLET(S);?
     Route: 048
     Dates: start: 20210101, end: 20210127
  2. TOPIRAMATE 25 MG TAB CIPL, GENERIC FOR: TOPAMAX [Suspect]
     Active Substance: TOPIRAMATE
     Indication: MIGRAINE
     Dosage: ?          QUANTITY:1 TABLET(S);?
     Route: 048
     Dates: start: 20210101, end: 20210127

REACTIONS (5)
  - Blepharospasm [None]
  - Myopia [None]
  - Vitreous floaters [None]
  - Visual snow syndrome [None]
  - Blindness [None]

NARRATIVE: CASE EVENT DATE: 20210126
